FAERS Safety Report 8269468-7 (Version None)
Quarter: 2012Q2

REPORT INFORMATION
  Report Type: 
  Country: None (occurrence: None)
  Receive Date: 20120409
  Receipt Date: 20120328
  Transmission Date: 20120825
  Serious: Yes (Other)
  Sender: FDA-Public Use
  Company Number: FR-MERCK-1203FRA00100

PATIENT
  Age: 70 Year
  Sex: Female

DRUGS (2)
  1. FOSAMAX PLUS D [Suspect]
     Route: 048
     Dates: start: 20070101, end: 20120327
  2. FOSAMAX PLUS D [Suspect]
     Indication: OSTEOPOROSIS
     Route: 048
     Dates: start: 20000101, end: 20070101

REACTIONS (7)
  - LOOSE TOOTH [None]
  - BREAST CANCER [None]
  - ULCER [None]
  - GINGIVITIS [None]
  - HYPERTENSION [None]
  - GASTRIC POLYPS [None]
  - TACHYARRHYTHMIA [None]
